FAERS Safety Report 9665428 (Version 1)
Quarter: 2013Q4

REPORT INFORMATION
  Report Type: Spontaneous
  Country: TW (occurrence: TW)
  Receive Date: 20131104
  Receipt Date: 20131104
  Transmission Date: 20140711
  Serious: Yes (Hospitalization)
  Sender: FDA-Public Use
  Company Number: TW-AMGEN-TWNSP2013077504

PATIENT
  Age: 70 Year
  Sex: Female

DRUGS (1)
  1. PROLIA [Suspect]
     Indication: OSTEOPOROSIS
     Dosage: UNK
     Route: 065
     Dates: start: 201309, end: 201309

REACTIONS (5)
  - Pruritus generalised [Recovered/Resolved]
  - Local swelling [Recovered/Resolved]
  - Skin erosion [Recovered/Resolved]
  - Rash [Recovered/Resolved]
  - Cellulitis [Recovered/Resolved]
